FAERS Safety Report 9010586 (Version 2)
Quarter: 2013Q1

REPORT INFORMATION
  Report Type: Spontaneous
  Country: US (occurrence: US)
  Receive Date: 20130109
  Receipt Date: 20130124
  Transmission Date: 20140127
  Serious: No
  Sender: FDA-Public Use
  Company Number: US-009507513-1301USA000621

PATIENT
  Sex: Male
  Weight: 72.56 kg

DRUGS (4)
  1. JANUMET XR [Suspect]
     Indication: DIABETES MELLITUS
     Dosage: UNK
     Route: 048
     Dates: start: 20121121
  2. CRESTOR [Concomitant]
  3. ASPIRIN [Concomitant]
  4. STARLIX [Concomitant]

REACTIONS (2)
  - Weight decreased [Unknown]
  - Product packaging issue [Unknown]
